FAERS Safety Report 18475610 (Version 1)
Quarter: 2020Q4

REPORT INFORMATION
  Report Type: Report from Study
  Country: US (occurrence: US)
  Receive Date: 20201106
  Receipt Date: 20201106
  Transmission Date: 20210114
  Serious: Yes (Hospitalization, Other)
  Sender: FDA-Public Use
  Company Number: US-SHIRE-US202008040

PATIENT
  Age: 42 Year
  Sex: Female

DRUGS (12)
  1. GATTEX [Suspect]
     Active Substance: TEDUGLUTIDE\WATER
     Dosage: 2.73 MILLIGRAM, 1X/DAY:QD
     Route: 058
     Dates: start: 20200214
  2. GATTEX [Suspect]
     Active Substance: TEDUGLUTIDE\WATER
     Dosage: 2.73 MILLIGRAM, QD
     Route: 058
     Dates: start: 202003
  3. GATTEX [Suspect]
     Active Substance: TEDUGLUTIDE\WATER
     Dosage: 2.73 MILLIGRAM, QD
     Route: 058
     Dates: start: 202003
  4. GATTEX [Suspect]
     Active Substance: TEDUGLUTIDE\WATER
     Indication: SHORT-BOWEL SYNDROME
     Dosage: 0.273 MICROGRAM, UNKNOWN
     Route: 065
  5. GATTEX [Suspect]
     Active Substance: TEDUGLUTIDE\WATER
     Dosage: 2.73 MILLIGRAM, 1X/DAY:QD
     Route: 058
     Dates: start: 20200214
  6. GATTEX [Suspect]
     Active Substance: TEDUGLUTIDE\WATER
     Dosage: 2.73 MILLIGRAM, QD
     Route: 058
     Dates: start: 202003
  7. GATTEX [Suspect]
     Active Substance: TEDUGLUTIDE\WATER
     Dosage: 2.73 MILLIGRAM, QD
     Route: 058
     Dates: start: 202003
  8. GATTEX [Suspect]
     Active Substance: TEDUGLUTIDE\WATER
     Indication: SHORT-BOWEL SYNDROME
     Dosage: 0.273 MICROGRAM, UNKNOWN
     Route: 065
  9. GATTEX [Suspect]
     Active Substance: TEDUGLUTIDE\WATER
     Indication: SHORT-BOWEL SYNDROME
     Dosage: 0.273 MICROGRAM, UNKNOWN
     Route: 065
  10. GATTEX [Suspect]
     Active Substance: TEDUGLUTIDE\WATER
     Indication: SHORT-BOWEL SYNDROME
     Dosage: 0.273 MICROGRAM, UNKNOWN
     Route: 065
  11. GATTEX [Suspect]
     Active Substance: TEDUGLUTIDE\WATER
     Dosage: 2.73 MILLIGRAM, 1X/DAY:QD
     Route: 058
     Dates: start: 20200214
  12. GATTEX [Suspect]
     Active Substance: TEDUGLUTIDE\WATER
     Dosage: 2.73 MILLIGRAM, 1X/DAY:QD
     Route: 058
     Dates: start: 20200214

REACTIONS (4)
  - Off label use [Unknown]
  - Constipation [Unknown]
  - Illness [Unknown]
  - Dyspnoea [Unknown]

NARRATIVE: CASE EVENT DATE: 20200218
